FAERS Safety Report 4436953-5 (Version None)
Quarter: 2004Q3

REPORT INFORMATION
  Report Type: 
  Country: None (occurrence: None)
  Receive Date: 20040726
  Receipt Date: 20040323
  Transmission Date: 20050211
  Serious: No
  Sender: FDA-Public Use
  Company Number: USA040362857

PATIENT
  Age: 73 Year
  Sex: Female

DRUGS (6)
  1. FORTEO [Suspect]
     Indication: OSTEOPOROSIS
     Dosage: 20 UG DAY
     Dates: start: 20031101
  2. PAXIL [Concomitant]
  3. KLONOPIN [Concomitant]
  4. AVAPRO [Concomitant]
  5. ATENOLOL [Concomitant]
  6. DILTIAZEM [Concomitant]

REACTIONS (4)
  - DIARRHOEA [None]
  - DIFFICULTY IN WALKING [None]
  - MUSCLE CRAMP [None]
  - WALKING AID USER [None]
